FAERS Safety Report 13436391 (Version 2)
Quarter: 2017Q2

REPORT INFORMATION
  Report Type: Spontaneous
  Country: ES (occurrence: ES)
  Receive Date: 20170413
  Receipt Date: 20170419
  Transmission Date: 20170830
  Serious: Yes (Other)
  Sender: FDA-Public Use
  Company Number: ES-BRACCO-001655

PATIENT
  Age: 38 Year
  Sex: Male

DRUGS (1)
  1. SONOVUE [Suspect]
     Active Substance: SULFUR HEXAFLUORIDE
     Indication: ECHOCARDIOGRAM
     Route: 042
     Dates: start: 20170329, end: 20170329

REACTIONS (1)
  - Sudden death [Unknown]

NARRATIVE: CASE EVENT DATE: 20170329
